FAERS Safety Report 19476826 (Version 1)
Quarter: 2021Q2

REPORT INFORMATION
  Report Type: Spontaneous
  Country: US (occurrence: US)
  Receive Date: 20210630
  Receipt Date: 20210630
  Transmission Date: 20210717
  Serious: No
  Sender: FDA-Public Use
  Company Number: US-PFIZER INC-2021276496

PATIENT
  Age: 77 Year
  Sex: Male

DRUGS (2)
  1. VIZIMPRO [Suspect]
     Active Substance: DACOMITINIB
     Indication: LUNG NEOPLASM MALIGNANT
     Dosage: 45 MG, DAILY
     Dates: start: 20210224
  2. VIZIMPRO [Suspect]
     Active Substance: DACOMITINIB
     Dosage: 0.5 DF

REACTIONS (3)
  - Abnormal faeces [Unknown]
  - Diarrhoea [Not Recovered/Not Resolved]
  - Constipation [Unknown]
